FAERS Safety Report 8551720-9 (Version None)
Quarter: 2012Q3

REPORT INFORMATION
  Report Type: 
  Country: None (occurrence: None)
  Receive Date: 20120730
  Receipt Date: 20120720
  Transmission Date: 20120928
  Serious: Yes (Death)
  Sender: FDA-Public Use
  Company Number: US-COVIDIEN/TYCO HEALTHCARE/MALLINCKRODT-T201202877

PATIENT
  Age: 18 Year
  Sex: Female

DRUGS (1)
  1. HYDROMORPHONE HYDROCHLORIDE [Suspect]
     Indication: PHARYNGITIS STREPTOCOCCAL
     Dosage: UNK, VIA PCA
     Route: 042
     Dates: start: 20100701

REACTIONS (1)
  - DEATH [None]
